FAERS Safety Report 9761053 (Version 2)
Quarter: 2014Q1

REPORT INFORMATION
  Report Type: Spontaneous
  Country: US (occurrence: US)
  Receive Date: 20131216
  Receipt Date: 20140205
  Transmission Date: 20141002
  Serious: No
  Sender: FDA-Public Use
  Company Number: US-PFIZER INC-2013355908

PATIENT
  Age: 67 Year
  Sex: Female

DRUGS (19)
  1. CELEBREX [Suspect]
     Dosage: UNK
  2. DILANTIN [Suspect]
     Dosage: UNK
  3. EFFEXOR XR [Suspect]
     Dosage: UNK
  4. NEURONTIN [Suspect]
     Dosage: UNK
  5. NIFEDIPINE [Suspect]
     Dosage: UNK
  6. LITHIUM CARBONATE [Suspect]
     Dosage: UNK
  7. EFFEXOR [Suspect]
     Dosage: UNK
  8. TRAZODONE HCL [Suspect]
     Dosage: UNK
  9. ANASPAZ [Suspect]
     Dosage: UNK
  10. CYMBALTA [Suspect]
     Dosage: UNK
  11. ELAVIL [Suspect]
     Dosage: UNK
  12. NAPROSYN [Suspect]
     Dosage: UNK
  13. PAMELOR [Suspect]
     Dosage: UNK
  14. PRILOSEC [Suspect]
     Dosage: UNK
  15. SOMA [Suspect]
     Dosage: UNK
  16. TOPAMAX [Suspect]
     Dosage: UNK
  17. VICODIN [Suspect]
     Dosage: UNK
  18. INAPSINE [Suspect]
     Dosage: UNK
  19. VALPROIC ACID [Suspect]
     Dosage: UNK

REACTIONS (1)
  - Drug hypersensitivity [Unknown]
